FAERS Safety Report 24374861 (Version 1)
Quarter: 2024Q3

REPORT INFORMATION
  Report Type: Spontaneous
  Country: US (occurrence: US)
  Receive Date: 20240927
  Receipt Date: 20240927
  Transmission Date: 20241016
  Serious: No
  Sender: SANOFI AVENTIS
  Company Number: US-SA-2024SA272182

PATIENT
  Age: 28 Year
  Sex: Female

DRUGS (1)
  1. DUPIXENT [Suspect]
     Active Substance: DUPILUMAB
     Dosage: 300 MG, QOW
     Route: 058

REACTIONS (8)
  - Injection site pain [Unknown]
  - Product preparation error [Unknown]
  - Rash pruritic [Unknown]
  - Sleep disorder [Unknown]
  - Pruritus [Unknown]
  - Eye pruritus [Unknown]
  - Lack of injection site rotation [Unknown]
  - Eczema [Unknown]

NARRATIVE: CASE EVENT DATE: 20240901
